FAERS Safety Report 5443023-6 (Version None)
Quarter: 2007Q3

REPORT INFORMATION
  Report Type: 
  Country: None (occurrence: None)
  Receive Date: 20070905
  Receipt Date: 20070828
  Transmission Date: 20080115
  Serious: Yes (Other)
  Sender: FDA-Public Use
  Company Number: PHFR2007GB02365

PATIENT
  Age: 41 Year
  Sex: Male
  Weight: 89 kg

DRUGS (2)
  1. CLOZARIL [Suspect]
     Indication: SCHIZOPHRENIA
     Dosage: }500MG / DAY
     Route: 048
     Dates: start: 19950201
  2. CLOZARIL [Suspect]
     Dosage: 300MG / DAY
     Route: 048
     Dates: start: 20050525

REACTIONS (11)
  - BALANCE DISORDER [None]
  - CHEST PAIN [None]
  - DYSKINESIA [None]
  - DYSPNOEA [None]
  - ELECTROENCEPHALOGRAM ABNORMAL [None]
  - EPILEPSY [None]
  - HEAD DISCOMFORT [None]
  - MUSCLE TWITCHING [None]
  - MYOCLONUS [None]
  - REFLUX OESOPHAGITIS [None]
  - TRISMUS [None]
